FAERS Safety Report 7782866-0 (Version None)
Quarter: 2011Q3

REPORT INFORMATION
  Report Type: 
  Country: None (occurrence: None)
  Receive Date: 20110928
  Receipt Date: 20110921
  Transmission Date: 20111222
  Serious: Yes (Other)
  Sender: FDA-Public Use
  Company Number: PHHY2010ZA78670

PATIENT

DRUGS (1)
  1. RITALIN [Suspect]

REACTIONS (1)
  - VISUAL IMPAIRMENT [None]
